FAERS Safety Report 11237722 (Version 2)
Quarter: 2015Q3

REPORT INFORMATION
  Report Type: Spontaneous
  Country: FR (occurrence: FR)
  Receive Date: 20150703
  Receipt Date: 20150714
  Transmission Date: 20151125
  Serious: Yes (Other)
  Sender: FDA-Public Use
  Company Number: FR-PFIZER INC-2015219719

PATIENT
  Age: 86 Year
  Sex: Female

DRUGS (12)
  1. CORDARONE [Suspect]
     Active Substance: AMIODARONE HYDROCHLORIDE
     Dosage: 1 DF, DAILY
     Route: 048
     Dates: start: 201504, end: 20150608
  2. LEXOMIL [Concomitant]
     Active Substance: BROMAZEPAM
     Dosage: UNK
  3. ARTISIAL [Concomitant]
     Active Substance: CALCIUM CHLORIDE\MAGNESIUM CHLORIDE\POTASSIUM CHLORIDE\POTASSIUM PHOSPHATE, DIBASIC\POTASSIUM PHOSPHATE, MONOBASIC\SODIUM CHLORIDE
     Dosage: UNK
  4. CEFTRIAXONE. [Suspect]
     Active Substance: CEFTRIAXONE
     Indication: URINARY TRACT INFECTION
     Dosage: 1 G, DAILY
     Route: 042
     Dates: start: 20150102, end: 20150108
  5. TRANSIPEG [Concomitant]
     Active Substance: POLYETHYLENE GLYCOL 3350
     Dosage: UNK
  6. LEVOTHYROX [Concomitant]
     Active Substance: LEVOTHYROXINE
     Dosage: UNK
  7. HEMIGOXINE NATIVELLE [Concomitant]
     Active Substance: DIGOXIN
     Dosage: UNK
  8. LASILIX [Concomitant]
     Active Substance: FUROSEMIDE
     Dosage: UNK
  9. BIOCIDAN [Concomitant]
     Dosage: UNK
  10. FUNGIZONE [Concomitant]
     Active Substance: AMPHOTERICIN B
     Dosage: UNK
     Dates: start: 20150529
  11. PREVISCAN [Concomitant]
     Active Substance: FLUINDIONE
     Dosage: UNK
  12. ALDACTONE [Concomitant]
     Active Substance: SPIRONOLACTONE
     Dosage: UNK

REACTIONS (2)
  - Vena cava thrombosis [Unknown]
  - Hepatocellular injury [Recovering/Resolving]

NARRATIVE: CASE EVENT DATE: 20150602
